FAERS Safety Report 7986183-5 (Version None)
Quarter: 2011Q4

REPORT INFORMATION
  Report Type: 
  Country: None (occurrence: None)
  Receive Date: 20111216
  Receipt Date: 20111213
  Transmission Date: 20120403
  Serious: Yes (Death, Hospitalization)
  Sender: FDA-Public Use
  Company Number: US-GLAXOSMITHKLINE-A0915670A

PATIENT
  Age: 54 Year
  Sex: Female

DRUGS (1)
  1. AVANDIA [Suspect]
     Indication: DIABETES MELLITUS
     Dosage: 8MG PER DAY
     Route: 048
     Dates: start: 20001101, end: 20040101

REACTIONS (11)
  - CARDIAC FAILURE CONGESTIVE [None]
  - BUNDLE BRANCH BLOCK [None]
  - MYOCARDIAL ISCHAEMIA [None]
  - CARDIO-RESPIRATORY ARREST [None]
  - ANGINA UNSTABLE [None]
  - DEPRESSION [None]
  - CARDIAC ASSISTANCE DEVICE USER [None]
  - PLEURAL EFFUSION [None]
  - OEDEMA [None]
  - NEPHROPATHY [None]
  - ACUTE MYOCARDIAL INFARCTION [None]
